FAERS Safety Report 11082675 (Version 1)
Quarter: 2015Q2

REPORT INFORMATION
  Report Type: Spontaneous
  Country: US (occurrence: US)
  Receive Date: 20150501
  Receipt Date: 20150501
  Transmission Date: 20150821
  Serious: No
  Sender: FDA-Public Use
  Company Number: US-ABBVIE-14P-163-1256241-00

PATIENT
  Age: 63 Year
  Sex: Male
  Weight: 73.55 kg

DRUGS (3)
  1. ANDROGEL [Suspect]
     Active Substance: TESTOSTERONE
     Indication: BLOOD TESTOSTERONE DECREASED
     Dosage: 2 PUMPS DAILY
     Route: 061
     Dates: start: 201305, end: 201405
  2. ANDROGEL [Suspect]
     Active Substance: TESTOSTERONE
     Dosage: 1-1.5 PUMPS DAILY, OCCASIONALLY TAKING PARTIAL DOSES
     Route: 061
     Dates: start: 201405
  3. CELEBREX [Concomitant]
     Active Substance: CELECOXIB
     Indication: PRODUCT USED FOR UNKNOWN INDICATION

REACTIONS (5)
  - Dehydroepiandrosterone decreased [Not Recovered/Not Resolved]
  - Incorrect dose administered [Not Recovered/Not Resolved]
  - Oestradiol increased [Recovering/Resolving]
  - Drug ineffective [Not Recovered/Not Resolved]
  - Blood testosterone increased [Not Recovered/Not Resolved]

NARRATIVE: CASE EVENT DATE: 2014
